FAERS Safety Report 6469628-1 (Version None)
Quarter: 2009Q4

REPORT INFORMATION
  Report Type: 
  Country: None (occurrence: None)
  Receive Date: 20091203
  Receipt Date: 20081014
  Transmission Date: 20100525
  Serious: Yes (Hospitalization, Other)
  Sender: FDA-Public Use
  Company Number: US-ELI_LILLY_AND_COMPANY-US200710006325

PATIENT
  Sex: Female
  Weight: 55.782 kg

DRUGS (6)
  1. FORTEO [Suspect]
     Indication: OSTEOPOROSIS
     Dosage: 20 UG, DAILY (1/D)
     Dates: start: 20070501
  2. NIFEDIPINE [Concomitant]
  3. COUMADIN [Concomitant]
  4. ARICEPT [Concomitant]
  5. METOPROLOL [Concomitant]
  6. AVAPRO [Concomitant]

REACTIONS (7)
  - ARTHRALGIA [None]
  - FOREIGN BODY ASPIRATION [None]
  - ISCHAEMIC STROKE [None]
  - JOINT SWELLING [None]
  - MUSCULOSKELETAL STIFFNESS [None]
  - OEDEMA PERIPHERAL [None]
  - PAIN IN EXTREMITY [None]
